FAERS Safety Report 8327464-5 (Version None)
Quarter: 2012Q2

REPORT INFORMATION
  Report Type: 
  Country: None (occurrence: None)
  Receive Date: 20120502
  Receipt Date: 20120427
  Transmission Date: 20120825
  Serious: No
  Sender: FDA-Public Use
  Company Number: US-BAYER-2012-041609

PATIENT
  Sex: Female

DRUGS (2)
  1. TYLENOL REGULAR [Concomitant]
     Dosage: 325 MG, UNK
  2. BETASERON [Suspect]
     Indication: PRODUCT USED FOR UNKNOWN INDICATION
     Dosage: .3 MG, QOD
     Route: 058

REACTIONS (2)
  - INJECTION SITE HAEMATOMA [None]
  - HORDEOLUM [None]
